FAERS Safety Report 12281333 (Version 9)
Quarter: 2017Q1

REPORT INFORMATION
  Report Type: Report from Study
  Country: US (occurrence: US)
  Receive Date: 20160419
  Receipt Date: 20170217
  Transmission Date: 20170428
  Serious: Yes (Hospitalization, Other)
  Sender: FDA-Public Use
  Company Number: US-GILEAD-2016-0208854

PATIENT
  Age: 71 Year
  Sex: Female
  Weight: 81.6 kg

DRUGS (5)
  1. ORENITRAM [Suspect]
     Active Substance: TREPROSTINIL
     Dosage: 1 MG, BID
     Route: 048
  2. ORENITRAM [Suspect]
     Active Substance: TREPROSTINIL
     Indication: PULMONARY HYPERTENSION
     Dosage: 1 MG, TID
     Route: 048
     Dates: start: 20150630
  3. ORENITRAM [Suspect]
     Active Substance: TREPROSTINIL
     Dosage: 1 MG, TID
     Route: 048
     Dates: start: 20170130
  4. XARELTO [Concomitant]
     Active Substance: RIVAROXABAN
  5. AMBRISENTAN [Suspect]
     Active Substance: AMBRISENTAN
     Indication: PULMONARY HYPERTENSION
     Dosage: 5 MG, QD
     Route: 065

REACTIONS (40)
  - Oedema [Not Recovered/Not Resolved]
  - Weight decreased [Unknown]
  - Dry mouth [Unknown]
  - Pyrexia [Unknown]
  - Gastrointestinal disorder [Unknown]
  - Thrombosis [Unknown]
  - Tooth infection [Not Recovered/Not Resolved]
  - Foot fracture [Unknown]
  - Dyspepsia [Unknown]
  - Obesity [Not Recovered/Not Resolved]
  - Dysphagia [Unknown]
  - Nasopharyngitis [Unknown]
  - Sleep disorder due to a general medical condition [Unknown]
  - Headache [Not Recovered/Not Resolved]
  - Dizziness [Not Recovered/Not Resolved]
  - Cellulitis [Unknown]
  - Arthritis [Not Recovered/Not Resolved]
  - Skin ulcer [Not Recovered/Not Resolved]
  - Insomnia [Not Recovered/Not Resolved]
  - Oesophageal food impaction [Not Recovered/Not Resolved]
  - Abasia [Unknown]
  - Sinusitis [Unknown]
  - Dizziness [Unknown]
  - Fluid retention [Unknown]
  - Scleroderma [Unknown]
  - Gastrooesophageal reflux disease [Not Recovered/Not Resolved]
  - Product difficult to swallow [Unknown]
  - Gastric disorder [Not Recovered/Not Resolved]
  - Hernia [Not Recovered/Not Resolved]
  - Nephrolithiasis [Not Recovered/Not Resolved]
  - Tooth abscess [Unknown]
  - Tooth disorder [Not Recovered/Not Resolved]
  - Gingival pain [Not Recovered/Not Resolved]
  - Upper respiratory tract infection [Unknown]
  - Dehydration [Unknown]
  - Lymphoedema [Unknown]
  - Toothache [Not Recovered/Not Resolved]
  - Unevaluable event [Unknown]
  - Gout [Unknown]
  - Constipation [Unknown]

NARRATIVE: CASE EVENT DATE: 20160427
